FAERS Safety Report 8984020 (Version 1)
Quarter: 2012Q4

REPORT INFORMATION
  Report Type: Spontaneous
  Country: US (occurrence: None)
  Receive Date: 20121214
  Receipt Date: 20121214
  Transmission Date: 20130627
  Serious: Yes (Other)
  Sender: FDA-Public Use
  Company Number: ADR-2012-02159

PATIENT
  Age: 13 Year
  Sex: Male

DRUGS (1)
  1. LIORESAL INTRATHECAL (BACLOFEN INJECTION) [Suspect]
     Indication: SPASTICITY

REACTIONS (4)
  - Drug withdrawal syndrome [None]
  - Implant site infection [None]
  - Staphylococcus test positive [None]
  - Device damage [None]
